FAERS Safety Report 23906442 (Version 3)
Quarter: 2024Q3

REPORT INFORMATION
  Report Type: Report from Study
  Country: US (occurrence: US)
  Receive Date: 20240528
  Receipt Date: 20240807
  Transmission Date: 20241016
  Serious: No
  Sender: SANDOZ
  Company Number: US-SANDOZ-SDZ2024US052317

PATIENT
  Age: 8 Year

DRUGS (2)
  1. OMNITROPE [Suspect]
     Active Substance: SOMATROPIN
     Indication: Product used for unknown indication
     Dosage: 0.9 MG, QD
     Route: 065
     Dates: start: 20240226
  2. OMNITROPE [Suspect]
     Active Substance: SOMATROPIN
     Indication: Product used for unknown indication
     Dosage: 0.9 MG, QD
     Route: 065
     Dates: start: 20240226

REACTIONS (2)
  - Accidental exposure to product [Unknown]
  - Device breakage [Unknown]

NARRATIVE: CASE EVENT DATE: 20240509
